FAERS Safety Report 8774094 (Version 2)
Quarter: 2012Q4

REPORT INFORMATION
  Report Type: 
  Country: US (occurrence: US)
  Receive Date: 20120910
  Receipt Date: 20120923
  Transmission Date: 20130627
  Serious: Yes (Other)
  Sender: FDA-Public Use
  Company Number: US-ABBOTT-12P-163-0974134-00

PATIENT
  Sex: Female
  Weight: 98.97 kg

DRUGS (10)
  1. VICODIN [Suspect]
     Indication: PAIN
     Dosage: 5/325mg
     Route: 048
     Dates: start: 201203
  2. VICODIN [Suspect]
     Dosage: 5/325mg
     Route: 048
     Dates: start: 2012
  3. PREDNISONE [Suspect]
     Indication: COUGH
     Route: 048
     Dates: start: 201207
  4. PREDNISONE [Suspect]
     Indication: INFLAMMATION
     Dates: start: 201207
  5. LANTUS [Concomitant]
     Indication: DIABETES MELLITUS
  6. NOVOLOG [Concomitant]
     Indication: DIABETES MELLITUS
  7. TOPROL XL [Concomitant]
     Indication: PRODUCT USED FOR UNKNOWN INDICATION
  8. PLAVIX [Concomitant]
     Indication: PRODUCT USED FOR UNKNOWN INDICATION
  9. COENZYME Q10 [Concomitant]
     Indication: PRODUCT USED FOR UNKNOWN INDICATION
  10. VITAMIN B12 [Concomitant]
     Indication: PRODUCT USED FOR UNKNOWN INDICATION

REACTIONS (7)
  - Red blood cell sedimentation rate decreased [Unknown]
  - Pain [Not Recovered/Not Resolved]
  - Blood glucose increased [Unknown]
  - Blood glucose abnormal [Unknown]
  - Fibromyalgia [Unknown]
  - Stress [Unknown]
  - Red blood cell sedimentation rate increased [Unknown]
